FAERS Safety Report 25528122 (Version 1)
Quarter: 2025Q3

REPORT INFORMATION
  Report Type: Report from Study
  Country: US (occurrence: US)
  Receive Date: 20250708
  Receipt Date: 20250708
  Transmission Date: 20251020
  Serious: No
  Sender: ACADIA PHARMACEUTICALS
  Company Number: US-ACADIA PHARMACEUTICALS INC.-ACA-2025-PIM-007913

PATIENT
  Sex: Male

DRUGS (10)
  1. NUPLAZID [Suspect]
     Active Substance: PIMAVANSERIN TARTRATE
     Indication: Dementia
     Dosage: 34 MILLIGRAM, QD
     Route: 048
  2. NUPLAZID [Suspect]
     Active Substance: PIMAVANSERIN TARTRATE
     Indication: Psychotic disorder
  3. AMOXICILLIN/CLAV [Concomitant]
  4. AMOXICILLIN [Concomitant]
     Active Substance: AMOXICILLIN
  5. BISOPROLOL FUMARATE [Concomitant]
     Active Substance: BISOPROLOL FUMARATE
  6. CARVEDILOL [Concomitant]
     Active Substance: CARVEDILOL
  7. FLUOROMETHOLONE [Concomitant]
     Active Substance: FLUOROMETHOLONE
  8. NEO POLYCIN [BACITRACIN ZINC;NEOMYCIN SULFATE;POLYMYXIN B SULFATE] [Concomitant]
  9. OMEPRAZOLE [Concomitant]
     Active Substance: OMEPRAZOLE
  10. RAMIPRIL [Concomitant]
     Active Substance: RAMIPRIL

REACTIONS (2)
  - Pruritus [Not Recovered/Not Resolved]
  - Product use in unapproved indication [Not Recovered/Not Resolved]
